FAERS Safety Report 7957624-4 (Version None)
Quarter: 2011Q4

REPORT INFORMATION
  Report Type: 
  Country: None (occurrence: None)
  Receive Date: 20111201
  Receipt Date: 20111117
  Transmission Date: 20120403
  Serious: Yes (Hospitalization)
  Sender: FDA-Public Use
  Company Number: FK201102706

PATIENT
  Age: 10 Year
  Sex: Male
  Weight: 57.6 kg

DRUGS (5)
  1. CEFUROXIME [Suspect]
     Indication: PRODUCT USED FOR UNKNOWN INDICATION
     Dosage: INTRAVENOUS (NOT OTHERWISE SPECIFIED)
     Route: 042
     Dates: start: 20111025, end: 20111030
  2. METRONIDAZOLE [Concomitant]
  3. IBUPROFEN [Concomitant]
  4. PARACETAMOL (PARACETAMOL) (PARACETAMOL) [Concomitant]
  5. GENTAMICIN [Concomitant]

REACTIONS (3)
  - GAMMA-GLUTAMYLTRANSFERASE INCREASED [None]
  - ALANINE AMINOTRANSFERASE INCREASED [None]
  - BLOOD ALKALINE PHOSPHATASE INCREASED [None]
